FAERS Safety Report 25288576 (Version 1)
Quarter: 2025Q2

REPORT INFORMATION
  Report Type: Spontaneous
  Country: JP (occurrence: JP)
  Receive Date: 20250509
  Receipt Date: 20250509
  Transmission Date: 20250717
  Serious: Yes (Other)
  Sender: PFIZER
  Company Number: JP-PFIZER INC-PV202500054142

PATIENT
  Age: 62 Year
  Sex: Male

DRUGS (1)
  1. SOLU-MEDROL [Suspect]
     Active Substance: METHYLPREDNISOLONE SODIUM SUCCINATE
     Dates: start: 202406, end: 202406

REACTIONS (3)
  - Cytomegalovirus enterocolitis [Unknown]
  - Condition aggravated [Unknown]
  - Bronchopulmonary aspergillosis [Unknown]
